FAERS Safety Report 10518797 (Version 1)
Quarter: 2014Q4

REPORT INFORMATION
  Report Type: Spontaneous
  Country: US (occurrence: None)
  Receive Date: 20141014
  Receipt Date: 20141014
  Transmission Date: 20150528
  Serious: No
  Sender: FDA-Public Use
  Company Number: None

PATIENT
  Age: 31 Year
  Sex: Male
  Weight: 80 kg

DRUGS (2)
  1. MEZO SUKRIT55 THAILAND [Suspect]
     Active Substance: DIETARY SUPPLEMENT
     Indication: WEIGHT CONTROL
     Dates: start: 20140926, end: 20141002
  2. ORLISTAT [Suspect]
     Active Substance: ORLISTAT

REACTIONS (5)
  - Libido decreased [None]
  - Product contamination [None]
  - Diarrhoea [None]
  - Disturbance in sexual arousal [None]
  - Rectal discharge [None]

NARRATIVE: CASE EVENT DATE: 20141002
